FAERS Safety Report 16557415 (Version 2)
Quarter: 2019Q3

REPORT INFORMATION
  Report Type: Spontaneous
  Country: CZ (occurrence: CZ)
  Receive Date: 20190711
  Receipt Date: 20190927
  Transmission Date: 20191004
  Serious: Yes (Other)
  Sender: FDA-Public Use
  Company Number: CZ-MYLANLABS-2019M1063182

PATIENT
  Age: 61 Year
  Sex: Female

DRUGS (16)
  1. LONSURF [Concomitant]
     Active Substance: TIPIRACIL HYDROCHLORIDE\TRIFLURIDINE
     Dosage: 80 MILLIGRAM, QD
     Route: 065
     Dates: start: 20171113
  2. FLUOROURACIL. [Suspect]
     Active Substance: FLUOROURACIL
     Indication: COLORECTAL ADENOCARCINOMA
     Dosage: UNK
     Route: 065
     Dates: start: 20150515
  3. AVASTIN [Suspect]
     Active Substance: BEVACIZUMAB
     Dosage: 2ND LINE
     Route: 065
     Dates: start: 20160425, end: 201611
  4. OXALIPLATIN. [Suspect]
     Active Substance: OXALIPLATIN
     Dosage: PART OF FOLOFOX REGIMEN
     Route: 042
  5. FLUOROURACIL. [Suspect]
     Active Substance: FLUOROURACIL
     Dosage: THE DOSE WAS REDUCED ABOUT 50 %
     Route: 065
     Dates: start: 20160425
  6. FOLINIC ACID [Suspect]
     Active Substance: LEUCOVORIN
     Indication: COLORECTAL ADENOCARCINOMA
     Dosage: UNK
     Route: 065
     Dates: start: 20150515
  7. STIVARGA [Concomitant]
     Active Substance: REGORAFENIB
     Route: 065
     Dates: start: 20170822
  8. IRINOTECAN [Suspect]
     Active Substance: IRINOTECAN
     Indication: COLORECTAL ADENOCARCINOMA
     Dosage: THE DOSE WAS REDUCED ABOUT 50 %
     Route: 065
     Dates: start: 20160425
  9. FOLINIC ACID [Suspect]
     Active Substance: LEUCOVORIN
     Dosage: PART OF FOLOFOX REGIMEN
     Route: 042
  10. BEVACIZUMAB. [Suspect]
     Active Substance: BEVACIZUMAB
     Indication: PRODUCT USED FOR UNKNOWN INDICATION
     Dosage: UNK
     Route: 065
  11. LONSURF [Concomitant]
     Active Substance: TIPIRACIL HYDROCHLORIDE\TRIFLURIDINE
     Dosage: 120 MILLIGRAM, QD
     Route: 065
     Dates: start: 20171113
  12. LONSURF [Concomitant]
     Active Substance: TIPIRACIL HYDROCHLORIDE\TRIFLURIDINE
     Dosage: FROM CYCLE 2 TILL CYCLE 11
     Route: 065
     Dates: start: 20171113
  13. OXALIPLATIN. [Suspect]
     Active Substance: OXALIPLATIN
     Indication: APPENDIX CANCER
     Dosage: UNK
     Route: 065
     Dates: start: 20150515, end: 201604
  14. FOLINIC ACID [Suspect]
     Active Substance: LEUCOVORIN
     Indication: APPENDIX CANCER
     Dosage: THE DOSE WAS REDUCED ABOUT 50 %
     Route: 065
     Dates: start: 20160425
  15. AVASTIN [Suspect]
     Active Substance: BEVACIZUMAB
     Indication: COLORECTAL ADENOCARCINOMA
     Dosage: 1 ST LINE, 1 IN 3 WEEK
     Route: 065
     Dates: start: 20150515, end: 201604
  16. CAPECITABINE. [Concomitant]
     Active Substance: CAPECITABINE
     Indication: COLORECTAL ADENOCARCINOMA
     Dosage: Q3W, 1 IN 3 WEEK
     Route: 065
     Dates: end: 201604

REACTIONS (7)
  - Neurotoxicity [Unknown]
  - Stomatitis [Unknown]
  - Off label use [Unknown]
  - Haematotoxicity [Recovered/Resolved]
  - Metastases to lung [Recovered/Resolved]
  - Vaginal fistula [Unknown]
  - Mucosal toxicity [Unknown]

NARRATIVE: CASE EVENT DATE: 2016
